FAERS Safety Report 11421352 (Version 1)
Quarter: 2015Q3

REPORT INFORMATION
  Report Type: Spontaneous
  Country: JP (occurrence: JP)
  Receive Date: 20150826
  Receipt Date: 20150826
  Transmission Date: 20151125
  Serious: Yes (Death, Other)
  Sender: FDA-Public Use
  Company Number: PHHY2015JP100748

PATIENT
  Age: 70 Year
  Sex: Female

DRUGS (2)
  1. CYTOSINE ARABINOSIDE [Suspect]
     Active Substance: CYTARABINE
     Indication: LYMPHOMA
     Dosage: 40 MG, UNK
     Route: 065
  2. METHOTREXATE [Suspect]
     Active Substance: METHOTREXATE
     Indication: LYMPHOMA
     Dosage: 15 MG, UNK
     Route: 037

REACTIONS (9)
  - Disorientation [Unknown]
  - Myelopathy [Unknown]
  - Gait disturbance [Unknown]
  - Pyrexia [Unknown]
  - Death [Fatal]
  - Paraplegia [Unknown]
  - Faecal incontinence [Unknown]
  - Depressed level of consciousness [Unknown]
  - Urinary incontinence [Unknown]
